FAERS Safety Report 14389741 (Version 1)
Quarter: 2018Q1

REPORT INFORMATION
  Report Type: Spontaneous
  Country: SE (occurrence: SE)
  Receive Date: 20180115
  Receipt Date: 20180115
  Transmission Date: 20180509
  Serious: Yes (Hospitalization, Other)
  Sender: FDA-Public Use
  Company Number: SE-009507513-1801SWE004034

PATIENT
  Sex: Female

DRUGS (2)
  1. POSACONAZOLE [Interacting]
     Active Substance: POSACONAZOLE
     Indication: CANDIDA INFECTION
     Route: 048
  2. SIMVASTATIN. [Suspect]
     Active Substance: SIMVASTATIN
     Indication: BLOOD CHOLESTEROL INCREASED
     Route: 048

REACTIONS (2)
  - Drug interaction [Unknown]
  - Rhabdomyolysis [Unknown]
